FAERS Safety Report 9475643 (Version 2)
Quarter: 2013Q3

REPORT INFORMATION
  Report Type: Spontaneous
  Country: JP (occurrence: JP)
  Receive Date: 20130826
  Receipt Date: 20130830
  Transmission Date: 20140515
  Serious: Yes (Other)
  Sender: FDA-Public Use
  Company Number: PHHY2013JP091600

PATIENT
  Age: 83 Year
  Sex: Female

DRUGS (1)
  1. TEGRETOL [Suspect]
     Indication: TRIGEMINAL NEURALGIA
     Dosage: 800 MG, DAILY
     Route: 048

REACTIONS (1)
  - Gastric cancer [Unknown]
